FAERS Safety Report 15888626 (Version 1)
Quarter: 2019Q1

REPORT INFORMATION
  Report Type: Spontaneous
  Country: US (occurrence: US)
  Receive Date: 20190130
  Receipt Date: 20190130
  Transmission Date: 20190417
  Serious: No
  Sender: FDA-Public Use
  Company Number: US-TEVA-2019-US-995321

PATIENT
  Sex: Male

DRUGS (1)
  1. TESTOSTERONE GEL TEVA [Suspect]
     Active Substance: TESTOSTERONE

REACTIONS (5)
  - Incorrect dose administered by product [Unknown]
  - Initial insomnia [Unknown]
  - Application site pruritus [Unknown]
  - Product substitution issue [Unknown]
  - Malabsorption from application site [Unknown]
